FAERS Safety Report 8288264-8 (Version None)
Quarter: 2012Q2

REPORT INFORMATION
  Report Type: 
  Country: None (occurrence: None)
  Receive Date: 20120416
  Receipt Date: 20120405
  Transmission Date: 20120825
  Serious: Yes (Hospitalization)
  Sender: FDA-Public Use
  Company Number: US-AMGEN-USASP2012019557

PATIENT
  Age: 87 Year
  Sex: Female
  Weight: 51.701 kg

DRUGS (5)
  1. PRAVASTATIN [Concomitant]
     Dosage: UNK
  2. CARDIA [Concomitant]
     Dosage: UNK
  3. LISINOPRIL [Concomitant]
     Dosage: UNK
  4. PROLIA [Suspect]
     Indication: OSTEOPOROSIS POSTMENOPAUSAL
     Dosage: 60 MG, Q6MO
     Dates: start: 20110101
  5. TOPROL-XL [Concomitant]
     Dosage: UNK

REACTIONS (14)
  - CLOSTRIDIUM DIFFICILE COLITIS [None]
  - MUSCLE SPASMS [None]
  - DECREASED APPETITE [None]
  - CYSTITIS [None]
  - DEHYDRATION [None]
  - COLITIS MICROSCOPIC [None]
  - MALAISE [None]
  - ASTHENIA [None]
  - NAUSEA [None]
  - PAIN IN EXTREMITY [None]
  - MUSCULOSKELETAL PAIN [None]
  - ABDOMINAL PAIN [None]
  - IRRITABLE BOWEL SYNDROME [None]
  - DRUG HYPERSENSITIVITY [None]
